FAERS Safety Report 24342972 (Version 1)
Quarter: 2024Q3

REPORT INFORMATION
  Report Type: Spontaneous
  Country: US (occurrence: None)
  Receive Date: 20240919
  Receipt Date: 20240919
  Transmission Date: 20241017
  Serious: Yes (Hospitalization)
  Sender: Public
  Company Number: None

PATIENT
  Age: 59 Year
  Sex: Female

DRUGS (1)
  1. INLYTA [Suspect]
     Active Substance: AXITINIB
     Indication: Renal cancer
     Dosage: FREQUENCY : TWICE A DAY;?
     Route: 048

REACTIONS (9)
  - Stomatitis [None]
  - Stomatitis [None]
  - Therapy interrupted [None]
  - Diarrhoea [None]
  - Constipation [None]
  - Asthenia [None]
  - Nausea [None]
  - Dehydration [None]
  - Pneumonia [None]
